FAERS Safety Report 5029059-8 (Version None)
Quarter: 2006Q2

REPORT INFORMATION
  Report Type: 
  Country: None (occurrence: None)
  Receive Date: 20060613
  Receipt Date: 20060602
  Transmission Date: 20061013
  Serious: Yes (Death, Other)
  Sender: FDA-Public Use
  Company Number: 2006-01372

PATIENT
  Age: 54 Year
  Sex: Female

DRUGS (2)
  1. VELCADE [Suspect]
     Indication: MULTIPLE MYELOMA
     Dosage: 1.30  MG/M2, INTRAVENOUS
     Route: 042
  2. CYCLOSPORINE [Concomitant]

REACTIONS (5)
  - CONDITION AGGRAVATED [None]
  - GRAFT VERSUS HOST DISEASE IN SKIN [None]
  - NEUROPATHY [None]
  - PLATELET TOXICITY [None]
  - SEPSIS [None]
